FAERS Safety Report 16787447 (Version 2)
Quarter: 2019Q3

REPORT INFORMATION
  Report Type: Spontaneous
  Country: SE (occurrence: SE)
  Receive Date: 20190909
  Receipt Date: 20190916
  Transmission Date: 20191005
  Serious: Yes (Hospitalization, Other)
  Sender: FDA-Public Use
  Company Number: SE-GLAXOSMITHKLINE-SE2019161644

PATIENT
  Age: 23 Year
  Sex: Female

DRUGS (4)
  1. ALIMEMAZINE [Suspect]
     Active Substance: TRIMEPRAZINE
     Indication: PRODUCT USED FOR UNKNOWN INDICATION
     Dosage: 600 MG, UNK
     Route: 048
     Dates: start: 20190312, end: 20190312
  2. GABAPENTIN. [Suspect]
     Active Substance: GABAPENTIN
     Indication: PRODUCT USED FOR UNKNOWN INDICATION
     Dosage: 24000 MG, UNK
     Route: 048
     Dates: start: 20190312, end: 20190312
  3. VOLTARENE (DICLOFENAC SODIUM) [Suspect]
     Active Substance: DICLOFENAC SODIUM
     Indication: PRODUCT USED FOR UNKNOWN INDICATION
     Dosage: 1000 MG, UNK
     Route: 048
     Dates: start: 20190312, end: 20190312
  4. LERGIGAN (PROMETHAZINE HYDROCHLORIDE) [Suspect]
     Active Substance: PROMETHAZINE HYDROCHLORIDE
     Indication: PRODUCT USED FOR UNKNOWN INDICATION
     Dosage: 750 MG, UNK
     Route: 048
     Dates: start: 20190312, end: 20190312

REACTIONS (4)
  - Hypotension [Unknown]
  - Suicide attempt [Unknown]
  - Intentional overdose [Unknown]
  - Abdominal pain [Unknown]

NARRATIVE: CASE EVENT DATE: 201903
